FAERS Safety Report 7353654-4 (Version None)
Quarter: 2011Q1

REPORT INFORMATION
  Report Type: 
  Country: None (occurrence: None)
  Receive Date: 20110303
  Receipt Date: 20101110
  Transmission Date: 20110831
  Serious: Yes (Hospitalization)
  Sender: FDA-Public Use
  Company Number: US-005517

PATIENT
  Age: 83 Year
  Sex: Male
  Weight: 72.7 kg

DRUGS (9)
  1. OMEPRAZOLE [Concomitant]
  2. CIPRO [Concomitant]
  3. HYDROCHLOROTHIAZIDE [Concomitant]
  4. ASPIRIN [Concomitant]
  5. LISINOPRIL [Concomitant]
  6. ZOCOR [Concomitant]
  7. ISOVUE-300 [Suspect]
     Indication: DYSURIA
     Dosage: 50ML ONCE INTRAVENOUS (NOT OTHERWISE SPECIFIED)
     Route: 042
     Dates: start: 20101109, end: 20101109
  8. ISOVUE-300 [Suspect]
     Indication: COMPUTERISED TOMOGRAM
     Dosage: 50ML ONCE INTRAVENOUS (NOT OTHERWISE SPECIFIED)
     Route: 042
     Dates: start: 20101109, end: 20101109
  9. ISOVUE-300 [Suspect]
     Indication: ABDOMINAL PAIN
     Dosage: 50ML ONCE INTRAVENOUS (NOT OTHERWISE SPECIFIED)
     Route: 042
     Dates: start: 20101109, end: 20101109

REACTIONS (1)
  - HYPERSENSITIVITY [None]
